FAERS Safety Report 12319954 (Version 1)
Quarter: 2016Q2

REPORT INFORMATION
  Report Type: Spontaneous
  Country: US (occurrence: US)
  Receive Date: 20160429
  Receipt Date: 20160429
  Transmission Date: 20160815
  Serious: No
  Sender: FDA-Public Use
  Company Number: US-ROCHE-1635749

PATIENT
  Sex: Female
  Weight: 118.95 kg

DRUGS (2)
  1. ESBRIET [Suspect]
     Active Substance: PIRFENIDONE
     Indication: IDIOPATHIC PULMONARY FIBROSIS
     Dosage: 3 CAPS PO TID: 2403 MG DAILY
     Route: 048
     Dates: start: 20150326
  2. PREDNISONE. [Concomitant]
     Active Substance: PREDNISONE
     Indication: RHEUMATOID ARTHRITIS
     Route: 048
     Dates: start: 2000

REACTIONS (7)
  - Decreased appetite [Unknown]
  - Nasopharyngitis [Unknown]
  - Drug dose omission [Unknown]
  - Pyrexia [Unknown]
  - Pain [Recovered/Resolved]
  - Gastrooesophageal reflux disease [Recovered/Resolved]
  - Cough [Unknown]
